FAERS Safety Report 6724514-4 (Version None)
Quarter: 2010Q2

REPORT INFORMATION
  Report Type: 
  Country: None (occurrence: None)
  Receive Date: 20100513
  Receipt Date: 20100504
  Transmission Date: 20101027
  Serious: Yes (Other)
  Sender: FDA-Public Use
  Company Number: CN-PFIZER INC-2010056219

PATIENT
  Age: 60 Year
  Sex: Female

DRUGS (2)
  1. ZOLOFT [Suspect]
     Indication: DEPRESSION
     Dosage: 100 MG, DAILY
     Route: 048
     Dates: start: 20100301
  2. AMITRIPTYLINE [Suspect]
     Indication: DEPRESSION
     Dosage: UNK
     Dates: start: 20100101, end: 20100504

REACTIONS (1)
  - TARDIVE DYSKINESIA [None]
